FAERS Safety Report 4608387-1 (Version None)
Quarter: 2005Q1

REPORT INFORMATION
  Report Type: 
  Country: None (occurrence: None)
  Receive Date: 20050315
  Receipt Date: 20050303
  Transmission Date: 20050727
  Serious: Yes (Other)
  Sender: FDA-Public Use
  Company Number: FR-JNJFOC-20050301656

PATIENT
  Age: 30 Year
  Sex: Female

DRUGS (3)
  1. REMICADE [Suspect]
     Indication: CROHN'S DISEASE
     Dosage: 9 INFUSIONS
     Route: 042
  2. IMUREL [Concomitant]
     Indication: CROHN'S DISEASE
  3. SALAZOPRINE [Concomitant]
     Indication: CROHN'S DISEASE

REACTIONS (1)
  - HERPES ZOSTER OPHTHALMIC [None]
